FAERS Safety Report 14695436 (Version 1)
Quarter: 2018Q1

REPORT INFORMATION
  Report Type: Spontaneous
  Country: US (occurrence: US)
  Receive Date: 20180329
  Receipt Date: 20180329
  Transmission Date: 20180509
  Serious: No
  Sender: FDA-Public Use
  Company Number: US-BAYER-2018-059041

PATIENT

DRUGS (7)
  1. ALEVE [Suspect]
     Active Substance: NAPROXEN SODIUM
     Indication: PSORIATIC ARTHROPATHY
     Dosage: UNK
  2. CHLOR-TRIMETON 12 HOUR [Suspect]
     Active Substance: CHLORPHENIRAMINE MALEATE
     Indication: URTICARIA
  3. CLARITIN [Suspect]
     Active Substance: LORATADINE
  4. MIRALAX [Suspect]
     Active Substance: POLYETHYLENE GLYCOL 3350
     Dosage: UNK
  5. ANTICOAGULANT SODIUM CITRATE [Concomitant]
     Active Substance: SODIUM CITRATE
  6. RID 1-2-3 SYSTEM [Concomitant]
     Active Substance: PIPERONYL BUTOXIDE\PYRETHRUM EXTRACT
  7. THALIDOMIDE [Concomitant]
     Active Substance: THALIDOMIDE

REACTIONS (3)
  - Urticaria [None]
  - Product use in unapproved indication [None]
  - Eczema [None]
